FAERS Safety Report 16876912 (Version 2)
Quarter: 2019Q4

REPORT INFORMATION
  Report Type: Report from Study
  Country: US (occurrence: US)
  Receive Date: 20191002
  Receipt Date: 20191029
  Transmission Date: 20200122
  Serious: Yes (Other)
  Sender: FDA-Public Use
  Company Number: US-JNJFOC-20190837686

PATIENT
  Age: 57 Year
  Sex: Male

DRUGS (1)
  1. IMBRUVICA [Suspect]
     Active Substance: IBRUTINIB
     Indication: LYMPHOCYTIC LEUKAEMIA
     Dosage: 420 MG, QD
     Route: 048
     Dates: start: 20190712

REACTIONS (8)
  - Stomatitis [Unknown]
  - Haemorrhage [Not Recovered/Not Resolved]
  - Contusion [Not Recovered/Not Resolved]
  - Bladder cancer [Unknown]
  - Haematuria [Recovered/Resolved]
  - Cellulitis [Unknown]
  - Swelling [Unknown]
  - Impaired healing [Unknown]

NARRATIVE: CASE EVENT DATE: 20190828
